FAERS Safety Report 10442663 (Version 4)
Quarter: 2014Q4

REPORT INFORMATION
  Report Type: Spontaneous
  Country: DE (occurrence: JP)
  Receive Date: 20140909
  Receipt Date: 20141015
  Transmission Date: 20150528
  Serious: Yes (Hospitalization, Other)
  Sender: FDA-Public Use
  Company Number: JP-FRI-1000070331

PATIENT
  Age: 69 Year
  Sex: Female
  Weight: 61 kg

DRUGS (12)
  1. MEMANTINE [Suspect]
     Active Substance: MEMANTINE
     Indication: DEMENTIA ALZHEIMER^S TYPE
     Dosage: 20 MG
     Route: 048
     Dates: start: 20130524, end: 20140816
  2. DUOTRAV [Concomitant]
     Active Substance: TIMOLOL\TRAVOPROST
  3. DONEPEZIL HCL [Suspect]
     Active Substance: DONEPEZIL HYDROCHLORIDE
     Indication: DEMENTIA ALZHEIMER^S TYPE
     Dosage: DOUBLE-BLIND
     Route: 048
     Dates: start: 20140305, end: 20140331
  4. ROZEREM [Concomitant]
     Active Substance: RAMELTEON
  5. OLMETEC [Suspect]
     Active Substance: OLMESARTAN MEDOXOMIL
     Dosage: 20 MG
     Route: 048
     Dates: start: 20140725, end: 20140816
  6. OLMETEC [Suspect]
     Active Substance: OLMESARTAN MEDOXOMIL
     Indication: HYPERTENSION
     Dosage: 40 MG
     Route: 048
     Dates: end: 20140724
  7. BIO-THREE [Concomitant]
     Active Substance: HERBALS
  8. DONEPEZIL HCL [Suspect]
     Active Substance: DONEPEZIL HYDROCHLORIDE
     Dosage: DOUBLE-BLIND
     Route: 048
     Dates: start: 20140401, end: 20140816
  9. NATRIX [Suspect]
     Active Substance: INDAPAMIDE
     Indication: HYPERTENSION
     Dosage: 1 MG
     Route: 048
     Dates: start: 20120406
  10. ATORVASTATIN [Concomitant]
     Active Substance: ATORVASTATIN
  11. YOKUKAN-SAN [Concomitant]
     Active Substance: UNSPECIFIED INGREDIENT
  12. HIRUDOID [Concomitant]
     Active Substance: GLYCOSAMINOGLYCANS

REACTIONS (1)
  - Blood pressure decreased [Recovered/Resolved]

NARRATIVE: CASE EVENT DATE: 20140724
